FAERS Safety Report 13983043 (Version 1)
Quarter: 2017Q3

REPORT INFORMATION
  Report Type: Spontaneous
  Country: US (occurrence: US)
  Receive Date: 20170918
  Receipt Date: 20170918
  Transmission Date: 20171128
  Serious: No
  Sender: FDA-Public Use
  Company Number: US-TEVA-736127ACC

PATIENT
  Age: 8 Year
  Sex: Male

DRUGS (1)
  1. FEXOFENADINE HYDROCHLORIDE SUSPENSION [Suspect]
     Active Substance: FEXOFENADINE HYDROCHLORIDE
     Dosage: 30 MG/5 ML

REACTIONS (1)
  - Labelled drug-drug interaction medication error [Unknown]
